FAERS Safety Report 10606212 (Version 1)
Quarter: 2014Q4

REPORT INFORMATION
  Report Type: Spontaneous
  Country: DE (occurrence: None)
  Receive Date: 20141121
  Receipt Date: 20141121
  Transmission Date: 20150529
  Serious: Yes (Hospitalization, Congenital Anomaly, Other)
  Sender: FDA-Public Use
  Company Number: DE-ZYDUS-005553

PATIENT
  Age: 1 Day
  Sex: Male
  Weight: 2.52 kg

DRUGS (2)
  1. LEVETIRACETAM. [Suspect]
     Active Substance: LEVETIRACETAM
     Dosage: 500.00-MG-1.0DAYS
  2. DIVALPROEX [Suspect]
     Active Substance: DIVALPROEX SODIUM

REACTIONS (12)
  - Adrenal haemorrhage [None]
  - Atrial septal defect [None]
  - Hypertelorism of orbit [None]
  - Arachnodactyly [None]
  - Maternal drugs affecting foetus [None]
  - Small for dates baby [None]
  - Foetal anticonvulsant syndrome [None]
  - Neonatal respiratory distress syndrome [None]
  - Patent ductus arteriosus [None]
  - Prominent epicanthal folds [None]
  - Dysmorphism [None]
  - Congenital nose malformation [None]
